FAERS Safety Report 23891172 (Version 1)
Quarter: 2024Q2

REPORT INFORMATION
  Report Type: Spontaneous
  Country: RU (occurrence: RU)
  Receive Date: 20240523
  Receipt Date: 20240523
  Transmission Date: 20240716
  Serious: Yes (Other)
  Sender: FDA-Public Use
  Company Number: RU-Merck Healthcare KGaA-2024028050

PATIENT
  Age: 54 Year
  Sex: Male

DRUGS (4)
  1. ERBITUX [Suspect]
     Active Substance: CETUXIMAB
     Indication: Colon cancer metastatic
     Dosage: 250 MG, WEEKLY (1/W)
     Route: 042
     Dates: start: 202304
  2. LEUCOVORIN CALCIUM [Suspect]
     Active Substance: LEUCOVORIN CALCIUM
     Indication: Colon cancer metastatic
     Dosage: UNK UNK, UNKNOWN
     Route: 065
     Dates: start: 202304
  3. FLUOROURACIL [Suspect]
     Active Substance: FLUOROURACIL
     Indication: Colon cancer metastatic
     Dosage: UNK UNK, UNKNOWN
     Route: 065
     Dates: start: 202304
  4. OXALIPLATIN [Suspect]
     Active Substance: OXALIPLATIN
     Indication: Colon cancer metastatic
     Dosage: UNK UNK, UNKNOWN
     Route: 065
     Dates: start: 202304

REACTIONS (3)
  - Neuropathy peripheral [Unknown]
  - Neutropenia [Unknown]
  - Leukopenia [Unknown]
